FAERS Safety Report 20596105 (Version 9)
Quarter: 2022Q4

REPORT INFORMATION
  Report Type: Report from Study
  Country: US (occurrence: US)
  Receive Date: 20220315
  Receipt Date: 20221223
  Transmission Date: 20230113
  Serious: Yes (Other)
  Sender: FDA-Public Use
  Company Number: US-NOVARTISTESTPH-NVSC2022US059120

PATIENT
  Sex: Female

DRUGS (2)
  1. COSENTYX [Suspect]
     Active Substance: SECUKINUMAB
     Indication: Psoriatic arthropathy
     Dosage: 150 MG, QMO
     Route: 058
  2. COSENTYX [Suspect]
     Active Substance: SECUKINUMAB
     Dosage: UNK
     Route: 065

REACTIONS (7)
  - Posterior capsule opacification [Unknown]
  - Anaemia [Unknown]
  - Pain [Recovering/Resolving]
  - Injury [Unknown]
  - Arthralgia [Not Recovered/Not Resolved]
  - Injection site haemorrhage [Unknown]
  - Drug ineffective [Recovering/Resolving]
